FAERS Safety Report 6315291-X (Version None)
Quarter: 2009Q3

REPORT INFORMATION
  Report Type: 
  Country: None (occurrence: None)
  Receive Date: 20090819
  Receipt Date: 20090811
  Transmission Date: 20100115
  Serious: Yes (Other)
  Sender: FDA-Public Use
  Company Number: PHHY2009BR33731

PATIENT
  Age: 41 Year
  Sex: Female

DRUGS (2)
  1. FORASEQ [Suspect]
     Dosage: 12/400 UG
     Dates: start: 20090805
  2. FORASEQ [Suspect]
     Dosage: 12/400 UG
     Dates: start: 20090806

REACTIONS (2)
  - BLOOD PRESSURE DECREASED [None]
  - DEPRESSION [None]
